FAERS Safety Report 4313224-9 (Version None)
Quarter: 2004Q1

REPORT INFORMATION
  Report Type: 
  Country: None (occurrence: None)
  Receive Date: 20040305
  Receipt Date: 20040211
  Transmission Date: 20041129
  Serious: Yes (Death, Other)
  Sender: FDA-Public Use
  Company Number: A-US2004-04937

PATIENT
  Age: 77 Year
  Sex: Female

DRUGS (12)
  1. TRACLEER [Suspect]
     Indication: PULMONARY HYPERTENSION
     Dosage: 62.5 MG, BID, ORAL
     Route: 048
     Dates: end: 20021114
  2. CARAFATE [Concomitant]
  3. DIGOXIN [Concomitant]
  4. PROTONIX [Concomitant]
  5. ARICEPT [Concomitant]
  6. SEROQUEL [Concomitant]
  7. CIPRO [Concomitant]
  8. FLONASE [Concomitant]
  9. TUSS-IONEX (HYDROCODONE, PHENYLTOLOXAMINE) [Concomitant]
  10. ATIVAN [Concomitant]
  11. MIACALCIN [Concomitant]
  12. TEQUIN [Concomitant]

REACTIONS (8)
  - ALANINE AMINOTRANSFERASE INCREASED [None]
  - ASPARTATE AMINOTRANSFERASE INCREASED [None]
  - BLOOD BILIRUBIN INCREASED [None]
  - LIVER FUNCTION TEST ABNORMAL [None]
  - PNEUMONIA [None]
  - PULMONARY HYPERTENSION [None]
  - RIGHT VENTRICULAR FAILURE [None]
  - SHOCK [None]
